FAERS Safety Report 7683513-9 (Version None)
Quarter: 2011Q3

REPORT INFORMATION
  Report Type: 
  Country: None (occurrence: None)
  Receive Date: 20110815
  Receipt Date: 20110808
  Transmission Date: 20111222
  Serious: Yes (Hospitalization)
  Sender: FDA-Public Use
  Company Number: US-TEVA-295493USA

PATIENT
  Age: 37 Year
  Sex: Female

DRUGS (2)
  1. DULOXETIME HYDROCHLORIDE [Interacting]
     Dosage: 120 MILLIGRAM;
  2. BUPROPION HCL [Suspect]
     Dosage: 300 MILLIGRAM;

REACTIONS (2)
  - SUICIDAL IDEATION [None]
  - DRUG INTERACTION [None]
